FAERS Safety Report 4769867-1 (Version None)
Quarter: 2005Q3

REPORT INFORMATION
  Report Type: 
  Country: None (occurrence: None)
  Receive Date: 20050908
  Receipt Date: 20050510
  Transmission Date: 20060218
  Serious: Yes (Other)
  Sender: FDA-Public Use
  Company Number: A03200501399

PATIENT
  Age: 64 Year
  Sex: Male

DRUGS (3)
  1. ELOXATIN [Suspect]
     Indication: COLON CANCER METASTATIC
     Dosage: 115 MG Q2W - INTRAVENOUS NOS
     Route: 042
  2. FLUOROURACIL [Concomitant]
  3. LEUCOVORIN [Concomitant]

REACTIONS (1)
  - DEAFNESS BILATERAL [None]
